FAERS Safety Report 20609426 (Version 1)
Quarter: 2022Q1

REPORT INFORMATION
  Report Type: Spontaneous
  Country: IL (occurrence: IL)
  Receive Date: 20220318
  Receipt Date: 20220318
  Transmission Date: 20220423
  Serious: Yes (Other)
  Sender: FDA-Public Use
  Company Number: IL-UCBSA-2021034448

PATIENT
  Age: 79 Year
  Sex: Female

DRUGS (5)
  1. CIMZIA [Suspect]
     Active Substance: CERTOLIZUMAB PEGOL
     Indication: Rheumatoid arthritis
     Dosage: 200 MILLIGRAM, EV 2 WEEKS(QOW)
     Dates: start: 202105, end: 20220219
  2. BISOPROLOL FUMARATE [Concomitant]
     Active Substance: BISOPROLOL FUMARATE
     Indication: Product used for unknown indication
  3. SERENADA [Concomitant]
     Indication: Product used for unknown indication
  4. SEROQUEL [Concomitant]
     Active Substance: QUETIAPINE FUMARATE
  5. MIRO [MIRTAZAPINE] [Concomitant]
     Indication: Product used for unknown indication

REACTIONS (7)
  - Eye abscess [Not Recovered/Not Resolved]
  - Blood pressure systolic increased [Unknown]
  - Pruritus [Unknown]
  - Injection site pain [Unknown]
  - Decreased appetite [Unknown]
  - Hallucination, visual [Recovered/Resolved]
  - Urinary tract infection [Unknown]

NARRATIVE: CASE EVENT DATE: 20210101
